FAERS Safety Report 20552030 (Version 1)
Quarter: 2022Q1

REPORT INFORMATION
  Report Type: Spontaneous
  Country: BL (occurrence: None)
  Receive Date: 20220303
  Receipt Date: 20220303
  Transmission Date: 20220424
  Serious: Yes (Hospitalization)
  Sender: FDA-Public Use
  Company Number: None

PATIENT
  Age: 56 Year
  Sex: Female
  Weight: 68 kg

DRUGS (3)
  1. CARBOPLATIN [Suspect]
     Active Substance: CARBOPLATIN
     Indication: Ovarian cancer recurrent
     Dosage: OTHER FREQUENCY : Q28 DAYS;?
     Route: 042
     Dates: start: 20220228, end: 20220228
  2. PACLITAXEL [Suspect]
     Active Substance: PACLITAXEL
     Indication: Ovarian cancer recurrent
     Dosage: OTHER FREQUENCY : DAYS 1, 8, 15;?
     Route: 042
     Dates: start: 20220228, end: 20220228
  3. Defactinlb [Concomitant]

REACTIONS (6)
  - Abdominal pain [None]
  - Leukocytosis [None]
  - Transaminases increased [None]
  - Hyperglycaemia [None]
  - Small intestinal obstruction [None]
  - Metastases to peritoneum [None]

NARRATIVE: CASE EVENT DATE: 20220301
